FAERS Safety Report 26204830 (Version 1)
Quarter: 2025Q4

REPORT INFORMATION
  Report Type: Spontaneous
  Country: EU (occurrence: None)
  Receive Date: 20251227
  Receipt Date: 20251227
  Transmission Date: 20260117
  Serious: Yes (Hospitalization, Other)
  Sender: AUROBINDO
  Company Number: EU-AEMPS-1798998

PATIENT
  Age: 50 Year
  Sex: Female

DRUGS (1)
  1. ACETAMINOPHEN [Suspect]
     Active Substance: ACETAMINOPHEN
     Indication: Suicide attempt
     Dosage: UNK
     Route: 061
     Dates: start: 20251115, end: 20251115

REACTIONS (4)
  - Hepatocellular injury [Recovering/Resolving]
  - Hyperbilirubinaemia [Recovered/Resolved]
  - Coagulation factor decreased [Recovered/Resolved]
  - Intentional overdose [Recovered/Resolved]

NARRATIVE: CASE EVENT DATE: 20251115
